FAERS Safety Report 8837775 (Version 1)
Quarter: 2012Q4

REPORT INFORMATION
  Report Type: 
  Country: IN (occurrence: IN)
  Receive Date: 20121012
  Receipt Date: 20121012
  Transmission Date: 20130627
  Serious: Yes (Life-Threatening, Hospitalization)
  Sender: FDA-Public Use
  Company Number: IN-MYLANLABS-2012S1020355

PATIENT
  Age: 24 Year
  Sex: Female

DRUGS (1)
  1. AMLODIPINE [Suspect]
     Indication: SUICIDE ATTEMPT
     Dosage: DF = 5mg (ingested total of 280mg)
     Route: 048

REACTIONS (11)
  - Intentional overdose [Recovered/Resolved]
  - Hypotension [Recovered/Resolved]
  - Nausea [Recovered/Resolved]
  - Vomiting [Recovered/Resolved]
  - Abdominal pain [Recovered/Resolved]
  - Metabolic acidosis [Recovered/Resolved]
  - Blood glucose increased [Recovered/Resolved]
  - Traumatic lung injury [Recovered/Resolved]
  - Tachycardia [Recovered/Resolved]
  - Suicidal ideation [Recovered/Resolved]
  - Toxicity to various agents [None]
